FAERS Safety Report 18366045 (Version 1)
Quarter: 2020Q4

REPORT INFORMATION
  Report Type: Spontaneous
  Country: CN (occurrence: CN)
  Receive Date: 20201009
  Receipt Date: 20201009
  Transmission Date: 20210114
  Serious: Yes (Disabling, Other)
  Sender: FDA-Public Use
  Company Number: CN-009507513-2010CHN001445

PATIENT
  Age: 44 Year
  Sex: Male
  Weight: 60.5 kg

DRUGS (1)
  1. TIENAM [Suspect]
     Active Substance: CILASTATIN SODIUM\IMIPENEM
     Indication: FEBRILE INFECTION
     Dosage: 1 GRAM, TID
     Route: 041
     Dates: start: 20200913, end: 20200915

REACTIONS (3)
  - Peptic ulcer haemorrhage [Recovering/Resolving]
  - Rash erythematous [Recovering/Resolving]
  - Rash pruritic [Recovering/Resolving]

NARRATIVE: CASE EVENT DATE: 20200913
